FAERS Safety Report 7565557-0 (Version None)
Quarter: 2011Q2

REPORT INFORMATION
  Report Type: 
  Country: None (occurrence: None)
  Receive Date: 20110615
  Receipt Date: 20110608
  Transmission Date: 20111010
  Serious: Yes (Hospitalization)
  Sender: FDA-Public Use
  Company Number: FUR-11-01

PATIENT
  Age: 37 Year
  Sex: Female

DRUGS (11)
  1. RUSCUS [Concomitant]
  2. GRAPEVINE [Concomitant]
  3. HAWTHORN [Concomitant]
  4. FUROSEMIDE [Suspect]
  5. CHITOSAN [Concomitant]
  6. IVY [Concomitant]
  7. POTASSIUM OROTATE [Concomitant]
  8. PIRENZEPINE [Concomitant]
  9. FLUOXETINE HCL [Concomitant]
  10. PASSION FLOWER [Concomitant]
  11. IDO-CASEIN [Concomitant]

REACTIONS (3)
  - HEPATIC NECROSIS [None]
  - HEPATIC FAILURE [None]
  - HEPATITIS [None]
